FAERS Safety Report 16659676 (Version 2)
Quarter: 2020Q2

REPORT INFORMATION
  Report Type: Spontaneous
  Country: NL (occurrence: NL)
  Receive Date: 20190802
  Receipt Date: 20200427
  Transmission Date: 20200713
  Serious: Yes (Hospitalization, Other)
  Sender: FDA-Public Use
  Company Number: NL-009507513-1907NLD014329

PATIENT
  Age: 56 Year
  Sex: Female

DRUGS (13)
  1. OXAZEPAM. [Interacting]
     Active Substance: OXAZEPAM
     Dosage: 40 MILLIGRAM, QD
     Dates: start: 201705
  2. TRANYLCYPROMINE [Interacting]
     Active Substance: TRANYLCYPROMINE
     Indication: DEPRESSION
     Dosage: 50 MILLIGRAM; 20-10-10-10 MG
     Dates: start: 2016
  3. TRANYLCYPROMINE [Interacting]
     Active Substance: TRANYLCYPROMINE
     Indication: ANXIETY
     Dosage: 40 MG OR 80 MG PRESCRIBED
  4. QUETIAPINE FUMARATE. [Interacting]
     Active Substance: QUETIAPINE FUMARATE
     Indication: SLEEP DISORDER
     Dosage: 25 MILLIGRAM, QD
     Dates: start: 201705
  5. OXAZEPAM. [Interacting]
     Active Substance: OXAZEPAM
     Dosage: 80 TO 90 MG
  6. LABETALOL [Concomitant]
     Active Substance: LABETALOL\LABETALOL HYDROCHLORIDE
     Indication: HYPERTENSION
     Dosage: 1 DOSAGE FORM, AS NECESSARY
  7. BRILIQUE [Concomitant]
     Active Substance: TICAGRELOR
     Dosage: 90 MILLIGRAM, BID
     Dates: start: 201705
  8. PANTOPRAZOLE [Concomitant]
     Active Substance: PANTOPRAZOLE
     Dosage: 40 MILLIGRAM, QD
     Dates: start: 201705
  9. SIMVASTATIN. [Suspect]
     Active Substance: SIMVASTATIN
     Dosage: 40 MILLIGRAM, QD
     Dates: start: 201705
  10. SYNAPAUSE [Concomitant]
     Dosage: 1 DOSAGE FORM, QD
  11. FOSINOPRIL SODIUM. [Interacting]
     Active Substance: FOSINOPRIL SODIUM
     Dosage: 10 MILLIGRAM, QD
     Dates: start: 201705
  12. ASPIRIN. [Interacting]
     Active Substance: ASPIRIN
     Dosage: 80 MILLIGRAM, QD
     Dates: start: 201705
  13. OXAZEPAM. [Interacting]
     Active Substance: OXAZEPAM
     Dosage: 10 MILLIGRAM, MORE THAN 10 YEARS

REACTIONS (16)
  - Hypertensive crisis [Unknown]
  - Myocardial infarction [Unknown]
  - Weight increased [Not Recovered/Not Resolved]
  - Insomnia [Not Recovered/Not Resolved]
  - Suicidal ideation [Recovering/Resolving]
  - Left ventricular dysfunction [Not Recovered/Not Resolved]
  - Potentiating drug interaction [Unknown]
  - Depression [Recovering/Resolving]
  - Therapeutic response unexpected [Unknown]
  - Orthostatic hypotension [Unknown]
  - Sleep disorder [Recovering/Resolving]
  - Blood pressure diastolic increased [Unknown]
  - Contraindicated product administered [Unknown]
  - Alopecia [Not Recovered/Not Resolved]
  - Intercepted medication error [Unknown]
  - Bradycardia [Unknown]

NARRATIVE: CASE EVENT DATE: 2017
